FAERS Safety Report 10443319 (Version 5)
Quarter: 2016Q4

REPORT INFORMATION
  Report Type: Report from Study
  Country: CA (occurrence: CA)
  Receive Date: 20140910
  Receipt Date: 20161115
  Transmission Date: 20170206
  Serious: Yes (Hospitalization)
  Sender: FDA-Public Use
  Company Number: CA-UCBSA-2014005605

PATIENT
  Age: 52 Year
  Sex: Female
  Weight: 52.2 kg

DRUGS (8)
  1. METHOTREXATE. [Suspect]
     Active Substance: METHOTREXATE
     Indication: RHEUMATOID ARTHRITIS
     Dosage: 20 MG, WEEKLY (QW)
     Route: 058
     Dates: start: 201104, end: 2014
  2. CERTOLIZUMAB PEGOL RA [Suspect]
     Active Substance: CERTOLIZUMAB PEGOL
     Indication: RHEUMATOID ARTHRITIS
     Dosage: 400 MG, EV 2 WEEKS(QOW) (X3)
     Route: 058
     Dates: start: 20140610, end: 20140715
  3. PANTOLOC [Concomitant]
     Active Substance: PANTOPRAZOLE SODIUM
     Indication: PROPHYLAXIS
     Dosage: 40 MG, ONCE DAILY (QD)
     Route: 048
     Dates: start: 2011
  4. CERTOLIZUMAB PEGOL RA [Suspect]
     Active Substance: CERTOLIZUMAB PEGOL
     Dosage: 200 MG, EV 2 WEEKS(QOW)
     Route: 058
     Dates: start: 20140729, end: 2014
  5. FOLIC ACID. [Concomitant]
     Active Substance: FOLIC ACID
     Indication: NAUSEA
     Dosage: 5 MG 6 DAYS/WEEK
     Route: 048
     Dates: start: 201104
  6. SYNTHROID [Concomitant]
     Active Substance: LEVOTHYROXINE SODIUM
     Dosage: 0.088 MG 1 DAY/WEEK
     Route: 048
  7. SYNTHROID [Concomitant]
     Active Substance: LEVOTHYROXINE SODIUM
     Indication: HYPOTHYROIDISM
     Dosage: 0.075 MG 6 DAYS/WEEK
     Route: 048
  8. DICLOFENAC [Concomitant]
     Active Substance: DICLOFENAC
     Indication: ARTHRALGIA
     Dosage: 100 MG, AS NEEDED (PRN) (SR)
     Route: 048
     Dates: start: 2011

REACTIONS (4)
  - Abdominal pain upper [Recovered/Resolved]
  - Contusion [Recovered/Resolved]
  - Headache [Recovered/Resolved]
  - Lung infection [Recovered/Resolved]

NARRATIVE: CASE EVENT DATE: 20140611
